FAERS Safety Report 16162346 (Version 1)
Quarter: 2019Q2

REPORT INFORMATION
  Report Type: Spontaneous
  Country: US (occurrence: US)
  Receive Date: 20190405
  Receipt Date: 20190405
  Transmission Date: 20190711
  Serious: No
  Sender: FDA-Public Use
  Company Number: US-LEO PHARMA-317835

PATIENT
  Sex: Female

DRUGS (3)
  1. PROTOPIC [Suspect]
     Active Substance: TACROLIMUS
     Indication: ROSACEA
     Dosage: ONCE
     Route: 061
     Dates: start: 20190328, end: 20190328
  2. VANICREAM [Concomitant]
     Active Substance: TITANIUM DIOXIDE\ZINC OXIDE
     Indication: PRODUCT USED FOR UNKNOWN INDICATION
  3. PROTOPIC [Suspect]
     Active Substance: TACROLIMUS
     Dosage: PAST
     Route: 061

REACTIONS (3)
  - Product use in unapproved indication [Unknown]
  - Product availability issue [Unknown]
  - Application site pain [Recovered/Resolved]

NARRATIVE: CASE EVENT DATE: 20190328
